FAERS Safety Report 8503047 (Version 2)
Quarter: 2012Q4

REPORT INFORMATION
  Report Type: Report from Study
  Country: US (occurrence: US)
  Receive Date: 20120411
  Receipt Date: 20120912
  Transmission Date: 20130627
  Serious: Yes (Other)
  Sender: FDA-Public Use
  Company Number: US-JNJFOC-20120401275

PATIENT
  Age: 12 Year
  Sex: Female
  Weight: 72.8 kg

DRUGS (17)
  1. REMICADE [Suspect]
     Indication: INFLAMMATORY BOWEL DISEASE
     Route: 042
     Dates: start: 20080313, end: 20110915
  2. 5-ASA [Suspect]
     Indication: INFLAMMATORY BOWEL DISEASE
     Route: 048
  3. HUMIRA [Suspect]
     Indication: INFLAMMATORY BOWEL DISEASE
     Dates: start: 20110930
  4. DESOXIMETASONE [Concomitant]
  5. FLUOCINOLONE [Concomitant]
  6. MUPIROCIN [Concomitant]
  7. FEXOFENADINE [Concomitant]
  8. OLOPATADINE [Concomitant]
  9. ALBUTEROL [Concomitant]
  10. DIPHENHYDRAMINE [Concomitant]
  11. MIRALAX [Concomitant]
  12. MULTIVITAMINS [Concomitant]
  13. CARBAMIDE PEROXIDE [Concomitant]
  14. CEPHALEXIN [Concomitant]
  15. LIDOCAINE [Concomitant]
  16. PRILOCAINE [Concomitant]
  17. ACETAMINOPHEN [Concomitant]

REACTIONS (1)
  - Psoriasis [Recovered/Resolved]
